FAERS Safety Report 9107473 (Version 2)
Quarter: 2013Q1

REPORT INFORMATION
  Report Type: Spontaneous
  Country: BR (occurrence: BR)
  Receive Date: 20130221
  Receipt Date: 20130306
  Transmission Date: 20140127
  Serious: Yes (Other)
  Sender: FDA-Public Use
  Company Number: BR-PFIZER INC-2013063367

PATIENT
  Sex: Female

DRUGS (2)
  1. CELEBRA [Suspect]
     Indication: ANTIINFLAMMATORY THERAPY
     Dosage: UNK
     Route: 048
  2. CELEBRA [Suspect]
     Indication: PAIN

REACTIONS (4)
  - Arthropathy [Unknown]
  - Limb injury [Unknown]
  - Joint dislocation [Unknown]
  - Tooth infection [Unknown]
